FAERS Safety Report 5662697-8 (Version None)
Quarter: 2008Q1

REPORT INFORMATION
  Report Type: 
  Country: None (occurrence: None)
  Receive Date: 20080313
  Receipt Date: 20080229
  Transmission Date: 20080703
  Serious: Yes (Death, Hospitalization)
  Sender: FDA-Public Use
  Company Number: US-KINGPHARMUSA00001-K200800264

PATIENT

DRUGS (12)
  1. ALTACE [Suspect]
     Indication: MYOCARDIAL ISCHAEMIA
     Dosage: 2.5 MG, QD
     Route: 048
     Dates: end: 20071230
  2. IKOREL [Suspect]
     Indication: CORONARY ARTERY INSUFFICIENCY
     Dosage: 10 MG, QD
     Route: 048
     Dates: end: 20071230
  3. OMEPRAZOLE [Suspect]
     Dosage: 20 MG, QD
     Route: 048
     Dates: end: 20071230
  4. KARDEGIC /00002703/ [Suspect]
     Indication: PROPHYLAXIS
     Dosage: 75 MG, QD
     Route: 048
     Dates: end: 20071230
  5. CARDENSIEL [Suspect]
     Indication: MYOCARDIAL ISCHAEMIA
     Dosage: 5 MG, QD
     Route: 048
     Dates: end: 20071230
  6. FUROSEMIDE [Suspect]
     Indication: MYOCARDIAL ISCHAEMIA
     Dosage: 1 U, QD
     Route: 048
     Dates: end: 20071230
  7. CRESTOR [Suspect]
     Indication: PROPHYLAXIS
     Dosage: 10 MG, QD
     Route: 048
     Dates: end: 20071230
  8. LEVOTHYROX [Suspect]
     Dosage: 25 UG, QD
     Route: 048
     Dates: end: 20071230
  9. ROCEPHIN [Suspect]
     Indication: SUPERINFECTION
     Dosage: UNK, UNK
     Route: 030
     Dates: start: 20071225
  10. MEDROL [Suspect]
     Indication: BRONCHITIS
     Dosage: UNK, UNK
     Route: 048
     Dates: start: 20071223, end: 20071228
  11. EXOMUC [Concomitant]
     Route: 048
     Dates: end: 20071201
  12. VENTOLIN [Concomitant]
     Dosage: UNK, UNK
     Dates: end: 20071201

REACTIONS (15)
  - BLOOD PRESSURE DECREASED [None]
  - DERMATITIS BULLOUS [None]
  - DYSPNOEA [None]
  - GENERALISED ERYTHEMA [None]
  - HAEMOGLOBIN DECREASED [None]
  - HYPOTHERMIA [None]
  - INTERNATIONAL NORMALISED RATIO INCREASED [None]
  - MULTI-ORGAN FAILURE [None]
  - OEDEMA [None]
  - PROTHROMBIN TIME RATIO DECREASED [None]
  - RESPIRATORY FAILURE [None]
  - SKIN DISORDER [None]
  - SKIN ULCER [None]
  - SPEECH DISORDER [None]
  - WHEEZING [None]
